FAERS Safety Report 9564050 (Version 1)
Quarter: 2013Q3

REPORT INFORMATION
  Report Type: Report from Study
  Country: GB (occurrence: GB)
  Receive Date: 20130928
  Receipt Date: 20130928
  Transmission Date: 20140515
  Serious: Yes (Hospitalization)
  Sender: FDA-Public Use
  Company Number: GB-ROCHE-1281778

PATIENT
  Sex: Male
  Weight: 99 kg

DRUGS (2)
  1. RITUXIMAB [Suspect]
     Indication: RHEUMATOID ARTHRITIS
     Route: 065
     Dates: start: 20120430
  2. METHOTREXATE [Concomitant]
     Route: 065
     Dates: start: 20120430

REACTIONS (1)
  - Renal failure acute [Unknown]
